FAERS Safety Report 8163811-5 (Version None)
Quarter: 2012Q1

REPORT INFORMATION
  Report Type: 
  Country: None (occurrence: None)
  Receive Date: 20120224
  Receipt Date: 20120214
  Transmission Date: 20120608
  Serious: Yes (Hospitalization, Other)
  Sender: FDA-Public Use
  Company Number: JP-PFIZER INC-2011240056

PATIENT
  Age: 61 Year
  Sex: Female
  Weight: 52.1 kg

DRUGS (3)
  1. TRIMEBUTINE MALEATE [Concomitant]
     Dosage: UNK
     Dates: start: 20110405
  2. CELECOXIB [Suspect]
     Indication: BACK PAIN
     Dosage: 100 MG, 2X/DAY
     Route: 048
     Dates: start: 20110927, end: 20110927
  3. SIMVASTATIN [Concomitant]
     Dosage: UNK
     Dates: start: 20080215

REACTIONS (3)
  - BLOOD GLUCOSE INCREASED [None]
  - DRUG HYPERSENSITIVITY [None]
  - ANAPHYLACTOID REACTION [None]
